FAERS Safety Report 9804025 (Version 1)
Quarter: 2014Q1

REPORT INFORMATION
  Report Type: Spontaneous
  Country: FR (occurrence: None)
  Receive Date: 20140103
  Receipt Date: 20140103
  Transmission Date: 20141002
  Serious: Yes (Hospitalization)
  Sender: FDA-Public Use
  Company Number: DSM-2013-01221

PATIENT
  Age: 75 Year
  Sex: Male

DRUGS (9)
  1. SEVIKAR [Suspect]
     Indication: HYPERTENSION
     Dosage: ORAL
     Route: 048
     Dates: end: 2013
  2. AMIODARONE [Concomitant]
  3. LEVOTHYROXINE [Concomitant]
  4. KARDEGIC [Concomitant]
  5. XARELTO [Concomitant]
  6. COUMADINE [Concomitant]
  7. VASTAREL [Concomitant]
  8. PERMIXON [Concomitant]
  9. TAHOR [Concomitant]

REACTIONS (14)
  - Weight decreased [None]
  - Gastroenteritis [None]
  - Abdominal pain [None]
  - Helicobacter gastritis [None]
  - Colitis [None]
  - Enteritis [None]
  - Rectal polyp [None]
  - Malnutrition [None]
  - Hypoalbuminaemia [None]
  - Hypokalaemia [None]
  - Enterococcal bacteraemia [None]
  - Cardiac failure [None]
  - Respiratory failure [None]
  - Gastrointestinal disorder [None]
